FAERS Safety Report 13362681 (Version 2)
Quarter: 2017Q2

REPORT INFORMATION
  Report Type: Spontaneous
  Country: JP (occurrence: JP)
  Receive Date: 20170323
  Receipt Date: 20170428
  Transmission Date: 20170830
  Serious: Yes (Hospitalization)
  Sender: FDA-Public Use
  Company Number: JP-ELI_LILLY_AND_COMPANY-JP201703006494

PATIENT
  Age: 63 Year
  Sex: Female
  Weight: 43 kg

DRUGS (12)
  1. TOPOTECIN [Concomitant]
     Active Substance: IRINOTECAN HYDROCHLORIDE
     Indication: RECTAL CANCER METASTATIC
     Dosage: 200 MG, DAY1, EVERY TWO WEEK
     Route: 042
     Dates: start: 20161122, end: 20170202
  2. 5 FU [Concomitant]
     Active Substance: FLUOROURACIL
     Indication: RECTAL CANCER METASTATIC
     Dosage: 500 MG, DAY1, EVERY TWO WEEK
     Route: 042
     Dates: start: 20161122, end: 20170202
  3. 5 FU [Concomitant]
     Active Substance: FLUOROURACIL
     Dosage: 3000 MG, DAY1-3, DAY14
     Route: 042
     Dates: start: 20161122, end: 20170204
  4. ORGADRONE                          /00016002/ [Concomitant]
     Indication: PROPHYLAXIS OF NAUSEA AND VOMITING
     Dosage: 10 MG, 1 DAY IN TWO WEEKS
     Route: 042
     Dates: start: 20161122, end: 20170202
  5. EMEND [Concomitant]
     Active Substance: APREPITANT
     Dosage: 80 MG, UNK
     Route: 048
     Dates: start: 20161123, end: 20170204
  6. EMEND [Concomitant]
     Active Substance: APREPITANT
     Indication: PROPHYLAXIS
     Dosage: 125 MG,
     Route: 048
     Dates: start: 20161122, end: 20170202
  7. DECADRON [Concomitant]
     Active Substance: DEXAMETHASONE
     Indication: PROPHYLAXIS OF NAUSEA AND VOMITING
     Dosage: 4 MG, 3 DAY IN TWO WEEKS
     Route: 048
     Dates: start: 20161123, end: 20170204
  8. ISOVORIN                           /06682103/ [Concomitant]
     Active Substance: LEUCOVORIN CALCIUM
     Indication: RECTAL CANCER METASTATIC
     Dosage: 250 MG, DAY1, EVERY TWO WEEK
     Route: 042
     Dates: start: 20161122, end: 20170202
  9. POLARAMINE [Concomitant]
     Active Substance: DEXCHLORPHENIRAMINE MALEATE
     Indication: PROPHYLAXIS
     Dosage: 5 MG, UNK
     Route: 042
     Dates: start: 20161122, end: 20170202
  10. CYRAMZA [Suspect]
     Active Substance: RAMUCIRUMAB
     Indication: RECTAL CANCER METASTATIC
     Dosage: 300 MG, DAY1, EVERY TWO WEEK
     Route: 042
     Dates: start: 20161122, end: 20170202
  11. BUSCOPAN [Concomitant]
     Active Substance: BUTYLSCOPOLAMINE BROMIDE
     Indication: PROPHYLAXIS
     Dosage: 20 MG, UNK
     Route: 042
     Dates: start: 20161122, end: 20170202
  12. ALOXI [Concomitant]
     Active Substance: PALONOSETRON HYDROCHLORIDE
     Indication: PROPHYLAXIS
     Dosage: 0.75 MG, UNK
     Route: 042
     Dates: start: 20161122, end: 20170202

REACTIONS (1)
  - Vaginal perforation [Recovered/Resolved]

NARRATIVE: CASE EVENT DATE: 20170204
